FAERS Safety Report 8093368-9 (Version None)
Quarter: 2012Q1

REPORT INFORMATION
  Report Type: 
  Country: None (occurrence: None)
  Receive Date: 20120131
  Receipt Date: 20120126
  Transmission Date: 20120608
  Serious: Yes (Other)
  Sender: FDA-Public Use
  Company Number: US-PFIZER INC-2012022890

PATIENT
  Sex: Female
  Weight: 64.853 kg

DRUGS (7)
  1. FUROSEMIDE [Concomitant]
     Indication: CARDIAC DISORDER
     Dosage: 40 MG, 4X/DAY
  2. SIMVASTATIN [Concomitant]
     Indication: CARDIAC DISORDER
     Dosage: 40 MG, 2X/DAY
  3. WARFARIN [Concomitant]
     Indication: CARDIAC DISORDER
     Dosage: 2 MG, DAILY
  4. POTASSIUM CHLORIDE [Concomitant]
     Indication: CARDIAC DISORDER
     Dosage: 20 UG, DAILY
  5. DIGOXIN [Concomitant]
     Indication: CARDIAC DISORDER
     Dosage: 125 UG, 3X/WEEK
  6. CORDARONE [Suspect]
     Indication: ATRIAL FIBRILLATION
     Dosage: UNK
     Dates: end: 20091105
  7. WARFARIN [Concomitant]
     Indication: THROMBOSIS

REACTIONS (3)
  - PULMONARY OEDEMA [None]
  - DYSPNOEA [None]
  - CARDIAC VALVE DISEASE [None]
